FAERS Safety Report 18710708 (Version 1)
Quarter: 2021Q1

REPORT INFORMATION
  Report Type: Spontaneous
  Country: PK (occurrence: PK)
  Receive Date: 20210107
  Receipt Date: 20210107
  Transmission Date: 20210419
  Serious: Yes (Other)
  Sender: FDA-Public Use
  Company Number: PK-ROCHE-2742141

PATIENT
  Age: 47 Year
  Sex: Male

DRUGS (2)
  1. TECENTRIQ [Suspect]
     Active Substance: ATEZOLIZUMAB
     Indication: HEPATOCELLULAR CARCINOMA
     Dosage: ON HOLD
     Route: 058
     Dates: start: 20200728
  2. AVASTIN [Suspect]
     Active Substance: BEVACIZUMAB
     Indication: HEPATOCELLULAR CARCINOMA
     Dosage: ON HOLD
     Route: 042
     Dates: start: 20200728

REACTIONS (3)
  - Metastases to lung [Unknown]
  - Oxygen saturation decreased [Unknown]
  - Asthenia [Unknown]
